FAERS Safety Report 18389980 (Version 1)
Quarter: 2020Q4

REPORT INFORMATION
  Report Type: Spontaneous
  Country: DE (occurrence: DE)
  Receive Date: 20201016
  Receipt Date: 20201016
  Transmission Date: 20210114
  Serious: Yes (Life-Threatening, Other)
  Sender: FDA-Public Use
  Company Number: DE-TERSERA THERAPEUTICS LLC-2020TRS003230

PATIENT

DRUGS (2)
  1. ZOLADEX [Suspect]
     Active Substance: GOSERELIN ACETATE
     Indication: PRODUCT USED FOR UNKNOWN INDICATION
     Dosage: UNK
     Route: 058
     Dates: start: 200011, end: 200309
  2. ZOLEDRONIC ACID [Concomitant]
     Active Substance: ZOLEDRONIC ACID
     Indication: PRODUCT USED FOR UNKNOWN INDICATION
     Dosage: SINCE NOV-2014
     Route: 065

REACTIONS (7)
  - Leukopenia [Unknown]
  - Breast cancer recurrent [Unknown]
  - Carbohydrate antigen 15-3 increased [Unknown]
  - Metastases to soft tissue [Unknown]
  - Skin mass [Unknown]
  - Metastases to thorax [Unknown]
  - Anaemia [Unknown]

NARRATIVE: CASE EVENT DATE: 2014
